FAERS Safety Report 8305509-6 (Version None)
Quarter: 2012Q2

REPORT INFORMATION
  Report Type: 
  Country: None (occurrence: None)
  Receive Date: 20120423
  Receipt Date: 20120105
  Transmission Date: 20120825
  Serious: Yes (Hospitalization)
  Sender: FDA-Public Use
  Company Number: AU-GLAXOSMITHKLINE-B0774453A

PATIENT
  Sex: Female
  Weight: 48 kg

DRUGS (1)
  1. ZOFRAN [Suspect]
     Indication: VOMITING
     Route: 065

REACTIONS (3)
  - VOMITING [None]
  - MATERNAL EXPOSURE DURING PREGNANCY [None]
  - CONDITION AGGRAVATED [None]
